FAERS Safety Report 14344504 (Version 1)
Quarter: 2018Q1

REPORT INFORMATION
  Report Type: Spontaneous
  Country: US (occurrence: US)
  Receive Date: 20180102
  Receipt Date: 20180102
  Transmission Date: 20180509
  Serious: No
  Sender: FDA-Public Use
  Company Number: US-PURDUE-USA-2017-0140337

PATIENT
  Age: 63 Year
  Sex: Female
  Weight: 49.43 kg

DRUGS (1)
  1. MORPHINE SULFATE EXTENDED-RELEASE TABLETS (RHODES 74-769, 74-862) [Suspect]
     Active Substance: MORPHINE SULFATE
     Indication: PAIN
     Dosage: 30 MG, BID
     Route: 048
     Dates: start: 201503, end: 201707

REACTIONS (22)
  - Tongue discomfort [Unknown]
  - Immune system disorder [Unknown]
  - Constipation [Recovered/Resolved]
  - Tongue erythema [Unknown]
  - Eczema [Unknown]
  - Lip swelling [Not Recovered/Not Resolved]
  - Glossodynia [Not Recovered/Not Resolved]
  - Weight decreased [Unknown]
  - Dry mouth [Not Recovered/Not Resolved]
  - Tongue haemorrhage [Not Recovered/Not Resolved]
  - Aptyalism [Not Recovered/Not Resolved]
  - Oral mucosal blistering [Not Recovered/Not Resolved]
  - Sinus disorder [Unknown]
  - Dry throat [Unknown]
  - Oropharyngeal pain [Not Recovered/Not Resolved]
  - Feeding disorder [Unknown]
  - Insomnia [Unknown]
  - Oral pain [Unknown]
  - Drooling [Not Recovered/Not Resolved]
  - Dysphagia [Unknown]
  - Blister [Not Recovered/Not Resolved]
  - Dysgeusia [Not Recovered/Not Resolved]

NARRATIVE: CASE EVENT DATE: 201503
